FAERS Safety Report 11942446 (Version 1)
Quarter: 2016Q1

REPORT INFORMATION
  Report Type: Spontaneous
  Country: US (occurrence: US)
  Receive Date: 20160125
  Receipt Date: 20160125
  Transmission Date: 20160526
  Serious: No
  Sender: FDA-Public Use
  Company Number: US-UNITED THERAPEUTICS-UNT-2015-011416

PATIENT
  Age: 70 Year
  Sex: Female
  Weight: 94.33 kg

DRUGS (1)
  1. REMODULIN [Suspect]
     Active Substance: TREPROSTINIL
     Indication: PULMONARY HYPERTENSION
     Dosage: 0.013 ?G/KG/MIN, CONTINUING
     Route: 058
     Dates: start: 20150903

REACTIONS (3)
  - Pain in extremity [Unknown]
  - Diarrhoea [Unknown]
  - Pain [Unknown]

NARRATIVE: CASE EVENT DATE: 201509
